FAERS Safety Report 5477507-1 (Version None)
Quarter: 2007Q4

REPORT INFORMATION
  Report Type: 
  Country: None (occurrence: None)
  Receive Date: 20071004
  Receipt Date: 20070925
  Transmission Date: 20080405
  Serious: Yes (Hospitalization, Disabling, Other)
  Sender: FDA-Public Use
  Company Number: US-PFIZER INC-2007055406

PATIENT
  Sex: Female
  Weight: 59 kg

DRUGS (2)
  1. CELEBREX [Suspect]
     Indication: MYOFASCIAL PAIN SYNDROME
     Dosage: FREQ:FREQUENCY: 1-4
     Route: 048
  2. CELEBREX [Suspect]
     Indication: OSTEOARTHRITIS

REACTIONS (6)
  - ANXIETY [None]
  - NEOVASCULARISATION [None]
  - OCULAR VASCULAR DISORDER [None]
  - RETINAL HAEMORRHAGE [None]
  - RETINAL VASCULAR THROMBOSIS [None]
  - VISUAL ACUITY REDUCED [None]
